FAERS Safety Report 22206331 (Version 1)
Quarter: 2023Q2

REPORT INFORMATION
  Report Type: Spontaneous
  Country: GB (occurrence: GB)
  Receive Date: 20230413
  Receipt Date: 20230413
  Transmission Date: 20230722
  Serious: Yes (Other)
  Sender: FDA-Public Use
  Company Number: None

PATIENT
  Age: 28 Year
  Sex: Female
  Weight: 74 kg

DRUGS (5)
  1. AMITRIPTYLINE [Suspect]
     Active Substance: AMITRIPTYLINE
     Indication: Ill-defined disorder
     Dosage: BEFORE BED
     Dates: start: 20230306
  2. ALMOTRIPTAN [Concomitant]
     Active Substance: ALMOTRIPTAN
     Indication: Ill-defined disorder
     Dosage: TAKE ONE AS DIRECTED
     Dates: start: 20230313
  3. CHOLECALCIFEROL [Concomitant]
     Active Substance: CHOLECALCIFEROL
     Indication: Ill-defined disorder
     Dosage: TAKE 1 TABLET WEEKLY FOR 6 WEEKS
     Dates: start: 20230105, end: 20230216
  4. DEPO-PROVERA [Concomitant]
     Active Substance: MEDROXYPROGESTERONE ACETATE
     Indication: Ill-defined disorder
     Dosage: USE AS DIRECTED
     Dates: start: 20230116
  5. TOPIRAMATE [Concomitant]
     Active Substance: TOPIRAMATE
     Indication: Migraine
     Dosage: BEFORE BED
     Dates: start: 20230331

REACTIONS (3)
  - Migraine with aura [Recovering/Resolving]
  - Alopecia [Recovering/Resolving]
  - Insomnia [Recovering/Resolving]
